FAERS Safety Report 6675582-X (Version None)
Quarter: 2010Q2

REPORT INFORMATION
  Report Type: 
  Country: None (occurrence: None)
  Receive Date: 20100409
  Receipt Date: 20100330
  Transmission Date: 20101027
  Serious: Yes (Other)
  Sender: FDA-Public Use
  Company Number: PHHY2009GB58054

PATIENT
  Sex: Female

DRUGS (6)
  1. FEMARA [Suspect]
     Indication: BREAST CANCER
     Dosage: 2.5 MG, UNK
     Route: 065
     Dates: end: 20091210
  2. VITAMIN D [Concomitant]
  3. CALCIUM [Concomitant]
  4. PHENOBARBITAL TAB [Concomitant]
     Indication: EPILEPSY
     Dosage: 90 MG
     Route: 048
     Dates: start: 20040101
  5. TEGRETOL [Concomitant]
     Indication: EPILEPSY
     Dosage: 1000 MG
     Route: 048
     Dates: start: 19900101
  6. RAMIPRIL [Concomitant]
     Indication: HYPERTENSION
     Dosage: 1.35 MG
     Dates: start: 20090728

REACTIONS (9)
  - CHILLS [None]
  - DECREASED APPETITE [None]
  - HYPERHIDROSIS [None]
  - POST PROCEDURAL DISCHARGE [None]
  - PYREXIA [None]
  - SWEAT GLAND DISORDER [None]
  - THIRST [None]
  - VOMITING [None]
  - WOUND DRAINAGE [None]
